FAERS Safety Report 8063638-9 (Version None)
Quarter: 2012Q1

REPORT INFORMATION
  Report Type: 
  Country: None (occurrence: None)
  Receive Date: 20120123
  Receipt Date: 20120118
  Transmission Date: 20120608
  Serious: Yes (Hospitalization)
  Sender: FDA-Public Use
  Company Number: US-GLAXOSMITHKLINE-A0962267A

PATIENT
  Age: 44 Year
  Sex: Female

DRUGS (2)
  1. ALLI [Suspect]
     Indication: WEIGHT DECREASED
     Route: 048
     Dates: end: 20080101
  2. TRICOR [Concomitant]
     Dosage: 145MG PER DAY
     Route: 065

REACTIONS (2)
  - HEPATIC FAILURE [None]
  - HYPERGLYCAEMIA [None]
